FAERS Safety Report 8552424-9 (Version None)
Quarter: 2012Q3

REPORT INFORMATION
  Report Type: 
  Country: None (occurrence: None)
  Receive Date: 20120724
  Receipt Date: 20120724
  Transmission Date: 20120928
  Serious: No
  Sender: FDA-Public Use
  Company Number: None

PATIENT
  Age: 74 Year
  Sex: Male
  Weight: 81.6475 kg

DRUGS (1)
  1. EXELON [Suspect]
     Indication: MEMORY IMPAIRMENT
     Dosage: 1 PATCH Q 24 HRS DERMALLY
     Route: 062
     Dates: start: 20110110, end: 20120610

REACTIONS (2)
  - APPLICATION SITE RASH [None]
  - APPLICATION SITE PRURITUS [None]
